FAERS Safety Report 6012604-3 (Version None)
Quarter: 2008Q4

REPORT INFORMATION
  Report Type: 
  Country: None (occurrence: None)
  Receive Date: 20081217
  Receipt Date: 20081201
  Transmission Date: 20090506
  Serious: Yes (Other)
  Sender: FDA-Public Use
  Company Number: 2008PL000270

PATIENT
  Age: 20 Year
  Sex: Female

DRUGS (8)
  1. LABETALOL HYDROCHLORIDE [Suspect]
     Indication: ECLAMPSIA
     Dosage: 20 MG;
  2. MAGNESIUM SULFATE [Concomitant]
  3. ALFENTANIL [Concomitant]
  4. THIOPENTHAL [Concomitant]
  5. SUXAMETHONIUM [Concomitant]
  6. SEVOFLURANE [Concomitant]
  7. MORPHINE [Concomitant]
  8. MIDAZOLAM [Concomitant]

REACTIONS (12)
  - AMNESIA [None]
  - ANURIA [None]
  - BLOOD POTASSIUM INCREASED [None]
  - CAESAREAN SECTION [None]
  - CARDIAC OUTPUT DECREASED [None]
  - DRUG EXPOSURE DURING PREGNANCY [None]
  - HAEMOGLOBIN DECREASED [None]
  - HELLP SYNDROME [None]
  - INTRACRANIAL PRESSURE INCREASED [None]
  - REVERSIBLE POSTERIOR LEUKOENCEPHALOPATHY SYNDROME [None]
  - SIMPLE PARTIAL SEIZURES [None]
  - STILLBIRTH [None]
